FAERS Safety Report 8773999 (Version 2)
Quarter: 2012Q4

REPORT INFORMATION
  Report Type: 
  Country: JP (occurrence: JP)
  Receive Date: 20120907
  Receipt Date: 20120914
  Transmission Date: 20130627
  Serious: No
  Sender: FDA-Public Use
  Company Number: JP-UCBSA-064842

PATIENT
  Age: 73 Year
  Sex: Female

DRUGS (5)
  1. E KEPPRA [Suspect]
     Route: 048
  2. DEPAKENE [Concomitant]
     Dosage: 800 MG DAILY
     Route: 048
  3. PLETAAL [Concomitant]
     Route: 048
  4. MAGMITT [Concomitant]
     Route: 048
  5. GASTER [Concomitant]

REACTIONS (1)
  - Leukopenia [Unknown]
